FAERS Safety Report 18342891 (Version 3)
Quarter: 2021Q2

REPORT INFORMATION
  Report Type: Spontaneous
  Country: US (occurrence: US)
  Receive Date: 20201005
  Receipt Date: 20210507
  Transmission Date: 20210717
  Serious: No
  Sender: FDA-Public Use
  Company Number: US-MYLANLABS-2020M1082402

PATIENT
  Sex: Male

DRUGS (6)
  1. EPINEPHRINE INJECTION USP AUTO?INJECTOR [Suspect]
     Active Substance: EPINEPHRINE
     Dosage: UNK
  2. EPIPEN [Suspect]
     Active Substance: EPINEPHRINE
     Indication: MULTIPLE ALLERGIES
     Dosage: UNK
     Route: 030
  3. EPINEPHRINE INJECTION USP AUTO?INJECTOR [Suspect]
     Active Substance: EPINEPHRINE
     Indication: MULTIPLE ALLERGIES
     Dosage: UNK
     Route: 030
  4. EPINEPHRINE INJECTION USP AUTO?INJECTOR [Suspect]
     Active Substance: EPINEPHRINE
     Dosage: UNK
  5. EPIPEN [Suspect]
     Active Substance: EPINEPHRINE
     Dosage: UNK
  6. EPINEPHRINE INJECTION USP AUTO?INJECTOR [Suspect]
     Active Substance: EPINEPHRINE
     Dosage: UNK

REACTIONS (1)
  - Product quality issue [None]
